FAERS Safety Report 4746840-0 (Version None)
Quarter: 2005Q3

REPORT INFORMATION
  Report Type: 
  Country: None (occurrence: None)
  Receive Date: 20050817
  Receipt Date: 20050725
  Transmission Date: 20060218
  Serious: Yes (Hospitalization, Other)
  Sender: FDA-Public Use
  Company Number: LV-BRISTOL-MYERS SQUIBB COMPANY-13049598

PATIENT
  Age: 59 Year
  Sex: Female

DRUGS (2)
  1. PACLITAXEL [Suspect]
     Indication: BREAST CANCER METASTATIC
     Route: 042
     Dates: start: 20050224
  2. PLACEBO [Suspect]
     Indication: BREAST CANCER METASTATIC
     Route: 048
     Dates: start: 20050224

REACTIONS (1)
  - EJECTION FRACTION DECREASED [None]
